FAERS Safety Report 17658869 (Version 1)
Quarter: 2020Q2

REPORT INFORMATION
  Report Type: Spontaneous
  Country: US (occurrence: US)
  Receive Date: 20200413
  Receipt Date: 20200413
  Transmission Date: 20200713
  Serious: No
  Sender: FDA-Public Use
  Company Number: US-TEVA-2020-US-1223152

PATIENT
  Sex: Female

DRUGS (4)
  1. TOPAMAX [Concomitant]
     Active Substance: TOPIRAMATE
     Dosage: 400 MILLIGRAM DAILY;
  2. AJOVY [Suspect]
     Active Substance: FREMANEZUMAB-VFRM
     Route: 065
  3. NORTRIP [Concomitant]
  4. PROP [Concomitant]
     Dosage: 80 MILLIGRAM DAILY;

REACTIONS (1)
  - Drug hypersensitivity [Unknown]
